FAERS Safety Report 12563358 (Version 1)
Quarter: 2016Q3

REPORT INFORMATION
  Report Type: Report from Study
  Country: RO (occurrence: RO)
  Receive Date: 20160715
  Receipt Date: 20160715
  Transmission Date: 20161109
  Serious: Yes (Hospitalization)
  Sender: FDA-Public Use
  Company Number: RO-ABBVIE-16P-135-1644891-00

PATIENT
  Age: 62 Year
  Sex: Female

DRUGS (10)
  1. EXVIERA [Suspect]
     Active Substance: DASABUVIR
     Indication: HEPATITIS C
     Dosage: 1-0-1
     Route: 048
     Dates: start: 20160202, end: 20160510
  2. EXVIERA [Suspect]
     Active Substance: DASABUVIR
     Indication: HEPATIC CIRRHOSIS
  3. CALCIUM D3 [Concomitant]
     Active Substance: CALCIUM\CHOLECALCIFEROL
     Indication: SPINAL OSTEOARTHRITIS
     Route: 048
     Dates: start: 200902
  4. ALPHA D3 [Concomitant]
     Indication: SPINAL OSTEOARTHRITIS
     Dosage: 0.10/DAY
     Route: 048
     Dates: start: 200902
  5. RIBAVIRIN. [Concomitant]
     Active Substance: RIBAVIRIN
     Indication: HEPATITIS C
     Route: 048
     Dates: start: 20160202, end: 20160510
  6. SERMION [Concomitant]
     Active Substance: NICERGOLINE
     Indication: SPINAL OSTEOARTHRITIS
     Route: 048
     Dates: start: 200902
  7. VIEKIRAX [Suspect]
     Active Substance: OMBITASVIR\PARITAPREVIR\RITONAVIR
     Indication: HEPATITIS C
     Dosage: 2-0-0
     Route: 048
     Dates: start: 20160202, end: 20160510
  8. BETASERC [Concomitant]
     Active Substance: BETAHISTINE
     Indication: SPINAL OSTEOARTHRITIS
     Route: 048
     Dates: start: 200902
  9. VIEKIRAX [Suspect]
     Active Substance: OMBITASVIR\PARITAPREVIR\RITONAVIR
     Indication: HEPATIC CIRRHOSIS
  10. RIBAVIRIN. [Concomitant]
     Active Substance: RIBAVIRIN
     Indication: HEPATIC CIRRHOSIS

REACTIONS (3)
  - Headache [Recovering/Resolving]
  - Vomiting [Not Recovered/Not Resolved]
  - Dizziness [Not Recovered/Not Resolved]

NARRATIVE: CASE EVENT DATE: 20160202
